FAERS Safety Report 25655579 (Version 1)
Quarter: 2025Q3

REPORT INFORMATION
  Report Type: Spontaneous
  Country: US (occurrence: None)
  Receive Date: 20250807
  Receipt Date: 20250807
  Transmission Date: 20251020
  Serious: No
  Sender: FDA-CTU
  Company Number: None

PATIENT

DRUGS (1)
  1. ZEPOSIA [Suspect]
     Active Substance: OZANIMOD HYDROCHLORIDE
     Indication: Multiple sclerosis
     Dosage: FREQUENCY : DAILY;?
     Route: 048

REACTIONS (3)
  - Hepatic enzyme increased [None]
  - Hepatic steatosis [None]
  - Liver injury [None]
